FAERS Safety Report 4746049-0 (Version None)
Quarter: 2005Q3

REPORT INFORMATION
  Report Type: 
  Country: None (occurrence: None)
  Receive Date: 20050816
  Receipt Date: 20050302
  Transmission Date: 20060218
  Serious: Yes (Hospitalization)
  Sender: FDA-Public Use
  Company Number: BE-ROCHE-397139

PATIENT
  Age: 49 Year
  Sex: Female
  Weight: 47 kg

DRUGS (7)
  1. FUZEON [Suspect]
     Route: 058
     Dates: start: 20041025
  2. DIDANOSINE [Concomitant]
  3. LAMIVUDINE [Concomitant]
  4. RITONAVIR [Concomitant]
  5. TIPRANAVIR [Concomitant]
  6. LORAZEPAM [Concomitant]
     Indication: INSOMNIA
     Dates: start: 20041125
  7. DEPAKENE [Concomitant]
     Indication: EPILEPSY
     Dosage: DEPAKINE 300 MG PLUS DEPAKINE ENTERIC COATED 500 MG.

REACTIONS (5)
  - BREAST ABSCESS [None]
  - DEPRESSED MOOD [None]
  - INJECTION SITE REACTION [None]
  - OSTEOMYELITIS [None]
  - SEROSITIS [None]
